FAERS Safety Report 14847819 (Version 1)
Quarter: 2018Q2

REPORT INFORMATION
  Report Type: Spontaneous
  Country: PH (occurrence: PH)
  Receive Date: 20180504
  Receipt Date: 20180504
  Transmission Date: 20180711
  Serious: Yes (Death, Other)
  Sender: FDA-Public Use
  Company Number: PH-PFIZER INC-2018177632

PATIENT
  Age: 80 Year
  Sex: Male

DRUGS (3)
  1. PLETAAL [Suspect]
     Active Substance: CILOSTAZOL
     Dosage: UNK
  2. VASTAREL [Suspect]
     Active Substance: TRIMETAZIDINE DIHYDROCHLORIDE
     Indication: HYPERTENSION
     Dosage: UNK
  3. ATORVASTATIN CALCIUM. [Suspect]
     Active Substance: ATORVASTATIN CALCIUM
     Indication: BLOOD CHOLESTEROL ABNORMAL
     Dosage: UNK

REACTIONS (2)
  - Hypertension [Fatal]
  - Cardiac death [Fatal]

NARRATIVE: CASE EVENT DATE: 20180317
